FAERS Safety Report 8591062 (Version 2)
Quarter: 2013Q1

REPORT INFORMATION
  Report Type: Report from Study
  Country: KR (occurrence: KR)
  Receive Date: 20120601
  Receipt Date: 20130108
  Transmission Date: 20140127
  Serious: Yes (Death, Life-Threatening, Hospitalization)
  Sender: FDA-Public Use
  Company Number: KR-JNJFOC-20120518067

PATIENT
  Age: 81 Year
  Sex: Male
  Weight: 62.8 kg

DRUGS (3)
  1. ABIRATERONE ACETATE [Suspect]
     Route: 048
  2. ABIRATERONE ACETATE [Suspect]
     Indication: PROSTATE CANCER METASTATIC
     Route: 048
     Dates: start: 20120313, end: 20120516
  3. PREDNISOLONE [Suspect]
     Indication: PROSTATE CANCER METASTATIC
     Route: 048
     Dates: start: 20120513, end: 20120516

REACTIONS (6)
  - Pleural effusion [Fatal]
  - Sepsis [Fatal]
  - Encephalopathy [Fatal]
  - Pneumonia [Fatal]
  - Muscular weakness [Not Recovered/Not Resolved]
  - Respiratory failure [Fatal]
